FAERS Safety Report 9505630 (Version 1)
Quarter: 2013Q1

REPORT INFORMATION
  Report Type: Spontaneous
  Country: US (occurrence: None)
  Receive Date: 20130220
  Receipt Date: 20130220
  Transmission Date: 20140127
  Serious: No
  Sender: FDA-Public Use
  Company Number: 1000041266

PATIENT
  Age: 51 Year
  Sex: Female

DRUGS (3)
  1. VIIBYRD [Suspect]
     Indication: DEPRESSION
     Dosage: 10 MG (10 MG, 1 IN 1 D), ORAL
     Route: 048
     Dates: start: 201208, end: 2012
  2. VIIBYRD [Suspect]
     Indication: DEPRESSION
     Dosage: 40 MG (40 MG, 1 IN 1 D), ORAL
     Route: 048
     Dates: start: 2012, end: 20121031
  3. LAMOTRIGINE (LAMOTRIGINE) (LAMOTRIGINE) [Concomitant]

REACTIONS (2)
  - Vomiting [None]
  - Diplopia [None]
